FAERS Safety Report 23404034 (Version 1)
Quarter: 2024Q1

REPORT INFORMATION
  Report Type: Report from Study
  Country: US (occurrence: US)
  Receive Date: 20240116
  Receipt Date: 20240116
  Transmission Date: 20240409
  Serious: Yes (Hospitalization)
  Sender: FDA-Public Use
  Company Number: US-BIOVITRUM-2024-US-000764

PATIENT
  Age: 12 Month
  Sex: Female

DRUGS (2)
  1. SYNAGIS [Suspect]
     Active Substance: PALIVIZUMAB
     Indication: Congenital subglottic stenosis
     Dosage: ONE TIME PERMONTH, SYNAGIS SOLN (100MG/ML)
     Route: 030
     Dates: start: 202312
  2. SYNAGIS [Suspect]
     Active Substance: PALIVIZUMAB
     Dosage: ONE TIME PERMONTH, SYNAGIS SOLN(50MG/0.5ML)
     Route: 030
     Dates: start: 202312

REACTIONS (2)
  - Respiratory syncytial virus infection [Unknown]
  - Off label use [Not Recovered/Not Resolved]

NARRATIVE: CASE EVENT DATE: 20231201
